FAERS Safety Report 25153967 (Version 1)
Quarter: 2025Q2

REPORT INFORMATION
  Report Type: Spontaneous
  Country: DE (occurrence: DE)
  Receive Date: 20250403
  Receipt Date: 20250403
  Transmission Date: 20250716
  Serious: Yes (Death)
  Sender: SANDOZ
  Company Number: DE-002147023-NVSC2022DE052298

PATIENT
  Sex: Female

DRUGS (3)
  1. AFINITOR [Suspect]
     Active Substance: EVEROLIMUS
     Indication: Hormone receptor positive HER2 negative breast cancer
     Dosage: 10 MG, QD (DAILY DOSE)
     Route: 048
     Dates: start: 20200821, end: 20210730
  2. FULVESTRANT [Suspect]
     Active Substance: FULVESTRANT
     Indication: Hormone receptor positive HER2 negative breast cancer
     Dosage: 500 MG, QD (DAILY DOSE) MONTHLY
     Route: 030
     Dates: start: 20200309, end: 20200810
  3. KISQALI [Suspect]
     Active Substance: RIBOCICLIB
     Indication: Hormone receptor positive HER2 negative breast cancer
     Dosage: 600 MG, QD (SCHEMA 21 DAYS INTAKE, 7  DAYS PAUSE)
     Route: 048
     Dates: start: 20200309, end: 20200723

REACTIONS (1)
  - Death [Fatal]

NARRATIVE: CASE EVENT DATE: 20220211
